FAERS Safety Report 25110250 (Version 1)
Quarter: 2025Q1

REPORT INFORMATION
  Report Type: Spontaneous
  Country: US (occurrence: US)
  Receive Date: 20250324
  Receipt Date: 20250324
  Transmission Date: 20250409
  Serious: No
  Sender: ALK-ABELLO
  Company Number: US-ALK-ABELLO A/S-2025AA000867

PATIENT

DRUGS (14)
  1. PISTACHIO NUT [Suspect]
     Active Substance: PISTACHIO
     Indication: Skin test
  2. PISTACHIO NUT [Suspect]
     Active Substance: PISTACHIO
  3. ALBUTEROL [Concomitant]
     Active Substance: ALBUTEROL
  4. JORNAY PM EXTENDED-RELEASE [Concomitant]
     Active Substance: METHYLPHENIDATE HYDROCHLORIDE
  5. FLUTICASONE [Concomitant]
     Active Substance: FLUTICASONE
  6. SALMETEROL [Concomitant]
     Active Substance: SALMETEROL
  7. UBRELVY [Concomitant]
     Active Substance: UBROGEPANT
  8. QUETIAPINE [Concomitant]
     Active Substance: QUETIAPINE
  9. CAPLYTA [Concomitant]
     Active Substance: LUMATEPERONE
  10. OMEPRAZOLE [Concomitant]
     Active Substance: OMEPRAZOLE
  11. CLINDAMYCIN [Concomitant]
     Active Substance: CLINDAMYCIN
     Route: 061
  12. METOPROLOL [Concomitant]
     Active Substance: METOPROLOL
  13. LITHIUM [Concomitant]
     Active Substance: LITHIUM
  14. CLOMID [Concomitant]
     Active Substance: CLOMIPHENE CITRATE

REACTIONS (1)
  - False negative investigation result [Unknown]
